FAERS Safety Report 7427429-1 (Version None)
Quarter: 2011Q2

REPORT INFORMATION
  Report Type: 
  Country: None (occurrence: None)
  Receive Date: 20110420
  Receipt Date: 20110406
  Transmission Date: 20111010
  Serious: Yes (Other)
  Sender: FDA-Public Use
  Company Number: US-CELGENEUS-163-21880-11031598

PATIENT
  Sex: Female

DRUGS (9)
  1. SEROQUEL [Concomitant]
     Indication: DEPRESSION
     Dosage: 50 MILLIGRAM
     Route: 065
  2. OMEPRAZOLE [Concomitant]
     Dosage: 20 MICROGRAM
     Route: 065
  3. REVLIMID [Suspect]
     Indication: MULTIPLE MYELOMA
     Dosage: 25 MILLIGRAM
     Route: 048
     Dates: start: 20100901
  4. FAMOTIDINE [Concomitant]
     Dosage: 20 MILLIGRAM
     Route: 065
  5. LEVOTHYROXINE SODIUM [Concomitant]
     Indication: HYPOTHYROIDISM
     Dosage: 100 MICROGRAM
     Route: 065
  6. SIMVASTATIN [Concomitant]
     Dosage: 20 MILLIGRAM
     Route: 065
  7. KLONOPIN [Concomitant]
     Dosage: .5 MILLIGRAM
     Route: 065
  8. SERTRALINE [Concomitant]
     Indication: DEPRESSION
     Dosage: 100 MILLIGRAM
     Route: 065
  9. SERTRALINE [Concomitant]
     Indication: ANXIETY

REACTIONS (1)
  - BALANCE DISORDER [None]
